FAERS Safety Report 25154340 (Version 2)
Quarter: 2025Q2

REPORT INFORMATION
  Report Type: Spontaneous
  Country: US (occurrence: US)
  Receive Date: 20250403
  Receipt Date: 20250407
  Transmission Date: 20250717
  Serious: No
  Sender: Haleon PLC
  Company Number: US-HALEON-2235703

PATIENT
  Age: 58 Year
  Sex: Female

DRUGS (1)
  1. NEXIUM [Suspect]
     Active Substance: ESOMEPRAZOLE MAGNESIUM
     Indication: Product used for unknown indication
     Dates: start: 20250324

REACTIONS (7)
  - Intermenstrual bleeding [Unknown]
  - Dizziness [Unknown]
  - Nausea [Unknown]
  - Flushing [Recovering/Resolving]
  - Feeding disorder [Recovering/Resolving]
  - Dry mouth [Unknown]
  - Gait disturbance [Unknown]

NARRATIVE: CASE EVENT DATE: 20250327
